FAERS Safety Report 7531426-5 (Version None)
Quarter: 2011Q2

REPORT INFORMATION
  Report Type: 
  Country: None (occurrence: None)
  Receive Date: 20110531
  Receipt Date: 20110519
  Transmission Date: 20111010
  Serious: Yes (Other)
  Sender: FDA-Public Use
  Company Number: 1000021107

PATIENT
  Age: 88 Year
  Sex: Female

DRUGS (1)
  1. MEMANTINE [Suspect]
     Indication: DEMENTIA
     Dosage: (10 MG), ORAL
     Route: 048
     Dates: start: 20110401

REACTIONS (1)
  - GENITAL INFECTION FUNGAL [None]
